FAERS Safety Report 24198203 (Version 1)
Quarter: 2024Q3

REPORT INFORMATION
  Report Type: Spontaneous
  Country: JP (occurrence: JP)
  Receive Date: 20240812
  Receipt Date: 20240812
  Transmission Date: 20241016
  Serious: Yes (Other)
  Sender: NOVO NORDISK
  Company Number: JP-NOVOPROD-1264516

PATIENT
  Age: 7 Decade
  Sex: Male

DRUGS (1)
  1. NOVOEIGHT [Suspect]
     Active Substance: ANTIHEMOPHILIC FACTOR, HUMAN RECOMBINANT
     Indication: Factor VIII deficiency
     Dosage: UNK
     Route: 042

REACTIONS (3)
  - Haemorrhagic diathesis [Unknown]
  - Dementia [Unknown]
  - Treatment noncompliance [Unknown]

NARRATIVE: CASE EVENT DATE: 20240725
